FAERS Safety Report 8130005-9 (Version None)
Quarter: 2012Q1

REPORT INFORMATION
  Report Type: 
  Country: None (occurrence: None)
  Receive Date: 20120210
  Receipt Date: 20120202
  Transmission Date: 20120608
  Serious: Yes (Other)
  Sender: FDA-Public Use
  Company Number: US-ABBOTT-12P-163-0901231-00

PATIENT
  Sex: Male
  Weight: 106.69 kg

DRUGS (1)
  1. HUMIRA [Suspect]
     Indication: RHEUMATOID ARTHRITIS
     Route: 058
     Dates: start: 20100401, end: 20101001

REACTIONS (4)
  - NEOPLASM MALIGNANT [None]
  - BREAST PAIN [None]
  - BREAST MASS [None]
  - NON-HODGKIN'S LYMPHOMA [None]
